FAERS Safety Report 19115729 (Version 8)
Quarter: 2022Q1

REPORT INFORMATION
  Report Type: Spontaneous
  Country: IN (occurrence: IN)
  Receive Date: 20210409
  Receipt Date: 20220221
  Transmission Date: 20220423
  Serious: Yes (Other)
  Sender: FDA-Public Use
  Company Number: IN-PFIZER INC-2021085416

PATIENT
  Age: 67 Year
  Sex: Female

DRUGS (5)
  1. PALBOCICLIB [Suspect]
     Active Substance: PALBOCICLIB
     Indication: Breast cancer metastatic
     Dosage: 125 MG, 1X/DAY
     Route: 048
     Dates: start: 20200626
  2. PALBOCICLIB [Suspect]
     Active Substance: PALBOCICLIB
     Dosage: 125 MG, CYCLIC (ONCE A DAY, FOR 21 DAYS IN A MONTH FOR 3 MONTHS)
     Route: 048
     Dates: start: 20200707
  3. PALBOCICLIB [Suspect]
     Active Substance: PALBOCICLIB
     Dosage: 125 MG, CYCLIC (ONCE A DAY, FOR 21 DAYS)
     Route: 048
     Dates: start: 20210614
  4. FEMARA [Concomitant]
     Active Substance: LETROZOLE
     Dosage: 1 TABLET, 1X/DAY, 3 MONTHS
     Dates: start: 202006
  5. CHYMORAL FORTE [Concomitant]
     Dosage: UNK, 3X/DAY, FOR 8 DAYS
     Dates: start: 202006

REACTIONS (6)
  - Breast haemorrhage [Unknown]
  - Breast mass [Unknown]
  - Back pain [Unknown]
  - Neoplasm progression [Not Recovered/Not Resolved]
  - Chest pain [Unknown]
  - Product prescribing error [Unknown]
